FAERS Safety Report 8097319-2 (Version None)
Quarter: 2012Q1

REPORT INFORMATION
  Report Type: 
  Country: None (occurrence: None)
  Receive Date: 20120128
  Receipt Date: 20110624
  Transmission Date: 20120608
  Serious: No
  Sender: FDA-Public Use
  Company Number: US-ABBOTT-11P-163-0835444-00

PATIENT
  Sex: Female
  Weight: 78.996 kg

DRUGS (5)
  1. PREDNISONE TAB [Concomitant]
     Indication: COLITIS ULCERATIVE
  2. HUMIRA [Suspect]
     Indication: COLITIS ULCERATIVE
     Dosage: 1ST LOADING DOSE, ONCE
     Route: 058
     Dates: start: 20110619, end: 20110619
  3. ZANTAC [Concomitant]
     Indication: PRODUCT USED FOR UNKNOWN INDICATION
  4. PERCOCET [Concomitant]
     Indication: FISTULA
  5. HUMIRA [Suspect]
     Dosage: 2ND LOADING DOSE, ONCE
     Route: 058
     Dates: start: 20110620, end: 20110620

REACTIONS (1)
  - INCORRECT DOSE ADMINISTERED [None]
